FAERS Safety Report 7908750-7 (Version None)
Quarter: 2011Q4

REPORT INFORMATION
  Report Type: 
  Country: None (occurrence: None)
  Receive Date: 20111111
  Receipt Date: 20111103
  Transmission Date: 20120403
  Serious: Yes (Hospitalization)
  Sender: FDA-Public Use
  Company Number: FR-UCBSA-045031

PATIENT
  Age: 82 Year
  Sex: Female

DRUGS (3)
  1. METHOTREXATE [Suspect]
     Indication: RHEUMATOID ARTHRITIS
     Route: 048
     Dates: end: 20110819
  2. CIMZIA [Suspect]
     Indication: RHEUMATOID ARTHRITIS
     Route: 058
     Dates: start: 20110401, end: 20110819
  3. PREDNISONE [Suspect]
     Indication: RHEUMATOID ARTHRITIS
     Route: 048

REACTIONS (7)
  - SPLEEN TUBERCULOSIS [None]
  - URINARY TRACT INFECTION [None]
  - NEUTROPENIA [None]
  - NEUROPATHY PERIPHERAL [None]
  - TUBERCULOSIS LIVER [None]
  - LYMPH NODE TUBERCULOSIS [None]
  - ANAEMIA [None]
